FAERS Safety Report 16551987 (Version 1)
Quarter: 2019Q3

REPORT INFORMATION
  Report Type: Spontaneous
  Country: HK (occurrence: CN)
  Receive Date: 20190710
  Receipt Date: 20190710
  Transmission Date: 20191004
  Serious: Yes (Hospitalization)
  Sender: FDA-Public Use
  Company Number: HK-BAYER-2019-128853

PATIENT
  Age: 49 Year
  Sex: Male

DRUGS (1)
  1. LAROTRECTINIB [Suspect]
     Active Substance: LAROTRECTINIB
     Dosage: UNK
     Route: 048
     Dates: start: 201906, end: 201906

REACTIONS (10)
  - Blood bilirubin increased [None]
  - Alanine aminotransferase abnormal [None]
  - Suspected counterfeit product [None]
  - Aspartate aminotransferase abnormal [None]
  - Respiratory disorder [None]
  - Oedema [None]
  - Jaundice [None]
  - Hospitalisation [None]
  - Hepatic function abnormal [None]
  - Anaemia [None]

NARRATIVE: CASE EVENT DATE: 201906
